FAERS Safety Report 8829863 (Version 1)
Quarter: 2012Q4

REPORT INFORMATION
  Report Type: 
  Country: US (occurrence: US)
  Receive Date: 20121008
  Receipt Date: 20121008
  Transmission Date: 20130627
  Serious: Yes (Death, Life-Threatening)
  Sender: FDA-Public Use
  Company Number: US-ROXANE LABORATORIES, INC.-2012-RO-01970RO

PATIENT
  Age: 47 Year
  Sex: Female

DRUGS (8)
  1. AZATHIOPRINE [Suspect]
     Indication: SYSTEMIC LUPUS ERYTHEMATOSUS
  2. PREDNISONE [Suspect]
     Indication: SYSTEMIC LUPUS ERYTHEMATOSUS
  3. CALCIUM CARBONATE [Suspect]
     Indication: OSTEOPOROSIS
  4. ELTROMBOPAG [Suspect]
     Indication: THROMBOCYTOPENIA
  5. WARFARIN [Suspect]
     Indication: AORTIC VALVE REPLACEMENT
  6. WARFARIN [Suspect]
     Indication: DRUG THERAPY
  7. HYDROXYCHLOROQUINE [Suspect]
     Indication: SYSTEMIC LUPUS ERYTHEMATOSUS
     Route: 048
  8. ALENDRONATE [Suspect]
     Indication: OSTEOPOROSIS

REACTIONS (2)
  - Sepsis [Fatal]
  - Hepatosplenic T-cell lymphoma [Unknown]
